FAERS Safety Report 6196819-X (Version None)
Quarter: 2009Q2

REPORT INFORMATION
  Report Type: 
  Country: None (occurrence: None)
  Receive Date: 20090520
  Receipt Date: 20090506
  Transmission Date: 20091009
  Serious: Yes (Other)
  Sender: FDA-Public Use
  Company Number: FR-ROCHE-631658

PATIENT
  Sex: Female

DRUGS (6)
  1. ROFERON-A [Suspect]
     Indication: CHOROIDITIS
     Dosage: DOSE: 3 MILLION IU
     Route: 058
     Dates: start: 20071101, end: 20081218
  2. ROFERON-A [Suspect]
     Dosage: DOSE: 3 MILLION IU
     Route: 058
     Dates: end: 20090421
  3. SEROPLEX [Concomitant]
  4. ACTONEL [Concomitant]
  5. PRETERAX [Concomitant]
  6. SOLUPRED [Concomitant]

REACTIONS (1)
  - PERIODONTAL DISEASE [None]
